FAERS Safety Report 7479584 (Version 4)
Quarter: 2013Q2

REPORT INFORMATION
  Report Type: Report from Study
  Country: NL (occurrence: NL)
  Receive Date: 20100716
  Receipt Date: 20130606
  Transmission Date: 20140414
  Serious: Yes (Hospitalization)
  Sender: FDA-Public Use
  Company Number: NL-JNJFOC-20100701921

PATIENT
  Age: 23 Year
  Sex: Male

DRUGS (4)
  1. REMICADE [Suspect]
     Indication: CROHN^S DISEASE
     Route: 042
     Dates: start: 20091203
  2. REMICADE [Suspect]
     Indication: CROHN^S DISEASE
     Route: 042
     Dates: start: 20051228
  3. METHOTREXATE [Concomitant]
     Indication: CROHN^S DISEASE
     Route: 065
  4. FOLIC ACID [Concomitant]
     Dosage: IN COMBINATION WITH METHOTREXATE
     Route: 065

REACTIONS (1)
  - Ileal stenosis [Recovered/Resolved]
